FAERS Safety Report 5575428-7 (Version None)
Quarter: 2007Q4

REPORT INFORMATION
  Report Type: 
  Country: None (occurrence: None)
  Receive Date: 20071227
  Receipt Date: 20071130
  Transmission Date: 20080405
  Serious: No
  Sender: FDA-Public Use
  Company Number: US-BOEHRINGER INGELHEIM PHARMACEUTICALS, INC.-2007-BP-23155BP

PATIENT
  Sex: Female
  Weight: 79 kg

DRUGS (8)
  1. AGGRENOX [Suspect]
     Indication: TRANSIENT ISCHAEMIC ATTACK
     Route: 048
     Dates: start: 20071019, end: 20071031
  2. AGGRENOX [Suspect]
     Indication: CEREBROVASCULAR ACCIDENT PROPHYLAXIS
  3. SYNTHROID [Concomitant]
     Dates: start: 20070126
  4. PLAVIX [Concomitant]
  5. AVAPRO [Concomitant]
     Dates: start: 20070126
  6. VYTORIN [Concomitant]
     Dates: start: 20070126
  7. CYMBALTA [Concomitant]
     Route: 065
     Dates: start: 20071017
  8. VITAMIN B-12 [Concomitant]
     Route: 030
     Dates: start: 20070126

REACTIONS (3)
  - INFLUENZA LIKE ILLNESS [None]
  - PAIN [None]
  - TREMOR [None]
